FAERS Safety Report 23525458 (Version 3)
Quarter: 2024Q3

REPORT INFORMATION
  Report Type: Spontaneous
  Country: US (occurrence: US)
  Receive Date: 20240215
  Receipt Date: 20240718
  Transmission Date: 20241016
  Serious: Yes (Other)
  Sender: BRISTOL MYERS SQUIBB
  Company Number: US-BRISTOL-MYERS SQUIBB COMPANY-2024-024501

PATIENT
  Age: 69 Year
  Sex: Male

DRUGS (2)
  1. POMALYST [Suspect]
     Active Substance: POMALIDOMIDE
     Indication: Plasma cell myeloma
     Dosage: TAKE 1 CAPSULE BY MOUTH EVERY DAY FOR 21 DAYS FOLLOWED BY A 7 DAY REST PERIOD
     Route: 048
     Dates: end: 20240530
  2. POMALYST [Suspect]
     Active Substance: POMALIDOMIDE
     Dosage: TAKE 1 CAPSULE BY MOUTH DAILY FOR 21 DAYS FOLLOWED BY A 7 DAY REST PERIOD OF A 28 DAY CYCLE
     Route: 048

REACTIONS (5)
  - Pain [Recovering/Resolving]
  - Fatigue [Unknown]
  - Constipation [Recovering/Resolving]
  - Stress [Unknown]
  - Psychiatric symptom [Unknown]
